FAERS Safety Report 18196048 (Version 2)
Quarter: 2020Q3

REPORT INFORMATION
  Report Type: Other
  Country: US (occurrence: US)
  Receive Date: 20200826
  Receipt Date: 20200925
  Transmission Date: 20201103
  Serious: Yes (Hospitalization, Other)
  Sender: FDA-Public Use
  Company Number: US-ROCHE-2663171

PATIENT
  Sex: Male

DRUGS (1)
  1. OCREVUS [Suspect]
     Active Substance: OCRELIZUMAB
     Indication: MULTIPLE SCLEROSIS
     Dosage: MOST RECENT INFUSION GIVEN ON 11/FEB/2019, 26/FEB/2019, 26/AUG/2019, 15/FEB/2020 AND 26/FEB/2020, 24
     Route: 065
     Dates: start: 20190211

REACTIONS (6)
  - Nephrolithiasis [Not Recovered/Not Resolved]
  - Intentional product misuse [Unknown]
  - Kidney infection [Not Recovered/Not Resolved]
  - Urinary tract infection [Not Recovered/Not Resolved]
  - White blood cell count increased [Not Recovered/Not Resolved]
  - Off label use [Unknown]
